FAERS Safety Report 7705228-0 (Version None)
Quarter: 2011Q3

REPORT INFORMATION
  Report Type: 
  Country: None (occurrence: None)
  Receive Date: 20110824
  Receipt Date: 20101228
  Transmission Date: 20111222
  Serious: No
  Sender: FDA-Public Use
  Company Number: US-MYLANLABS-2010S1023780

PATIENT
  Sex: Female

DRUGS (5)
  1. DOXEPIN HYDROCHLORIDE [Suspect]
  2. GEMFIBROZIL [Suspect]
     Indication: BLOOD CHOLESTEROL INCREASED
     Dates: start: 20101101
  3. TRIFLUOPERAZINE HCL [Suspect]
  4. BUPROPION HCL [Suspect]
  5. ALPRAZOLAM [Suspect]

REACTIONS (2)
  - MOOD SWINGS [None]
  - INSOMNIA [None]
